FAERS Safety Report 6594837-0 (Version None)
Quarter: 2010Q1

REPORT INFORMATION
  Report Type: 
  Country: None (occurrence: None)
  Receive Date: 20100222
  Receipt Date: 20100209
  Transmission Date: 20100710
  Serious: Yes (Hospitalization, Other)
  Sender: FDA-Public Use
  Company Number: BR-ABBOTT-08P-020-0451242-00

PATIENT
  Sex: Female
  Weight: 68 kg

DRUGS (8)
  1. HUMIRA [Suspect]
     Indication: RHEUMATOID ARTHRITIS
     Route: 058
     Dates: start: 20070601, end: 20080309
  2. CORTICOID [Concomitant]
     Indication: RHEUMATOID ARTHRITIS
     Route: 048
  3. TENATREN [Concomitant]
     Indication: HYPERTENSION
     Route: 048
     Dates: start: 20070101
  4. METICORTEN [Concomitant]
     Indication: DRUG USE FOR UNKNOWN INDICATION
     Route: 048
  5. OSCAL D [Concomitant]
     Indication: MINERAL SUPPLEMENTATION
     Route: 048
  6. REUTREXATO [Concomitant]
     Indication: RHEUMATOID ARTHRITIS
     Route: 048
  7. ENDOFOLIN [Concomitant]
     Indication: RHEUMATOID ARTHRITIS
     Route: 048
  8. HEFESTOS [Concomitant]
     Indication: ANTIDEPRESSANT THERAPY
     Route: 048
     Dates: start: 20091201

REACTIONS (3)
  - BONE PAIN [None]
  - SPINAL DISORDER [None]
  - SPINAL OPERATION [None]
